FAERS Safety Report 5383672-7 (Version None)
Quarter: 2007Q3

REPORT INFORMATION
  Report Type: 
  Country: None (occurrence: None)
  Receive Date: 20070706
  Receipt Date: 20070625
  Transmission Date: 20080115
  Serious: Yes (Other)
  Sender: FDA-Public Use
  Company Number: 157476USA

PATIENT
  Age: 90 Year
  Sex: Female

DRUGS (1)
  1. METFORMIN HYDROCHLORIDE [Suspect]
     Indication: DIABETES MELLITUS
     Dosage: 500 MG (500 MG, 1 IN 1 D)
     Dates: start: 20060101

REACTIONS (6)
  - BLINDNESS [None]
  - BLOOD GLUCOSE DECREASED [None]
  - FEELING ABNORMAL [None]
  - LETHARGY [None]
  - MUSCLE STRAIN [None]
  - VISUAL DISTURBANCE [None]
